FAERS Safety Report 7482542-8 (Version None)
Quarter: 2011Q2

REPORT INFORMATION
  Report Type: 
  Country: None (occurrence: None)
  Receive Date: 20110516
  Receipt Date: 20110503
  Transmission Date: 20111010
  Serious: Yes (Hospitalization, Other)
  Sender: FDA-Public Use
  Company Number: US-BAYER-201036919NA

PATIENT
  Age: 43 Year
  Sex: Female
  Weight: 84 kg

DRUGS (7)
  1. CIPROFLOXACIN [Concomitant]
     Dosage: 500 MG, BID
     Dates: start: 20060920
  2. CHEWABLE ANTACID [Concomitant]
     Route: 048
  3. CHILDRENS CHEWABLE VITAMINS [Concomitant]
     Route: 048
  4. TEA, GREEN [Concomitant]
     Route: 048
  5. YASMIN [Suspect]
     Indication: ORAL CONTRACEPTION
     Dosage: UNK UNK, UNK
     Route: 048
     Dates: start: 20040802, end: 20060922
  6. MULTI-VITAMIN [Concomitant]
     Route: 048
  7. LEXAPRO [Concomitant]
     Dosage: UNK
     Route: 048
     Dates: start: 20060101, end: 20070101

REACTIONS (3)
  - GALLBLADDER DISORDER [None]
  - PULMONARY EMBOLISM [None]
  - CHOLECYSTITIS [None]
